FAERS Safety Report 5053293-4 (Version None)
Quarter: 2006Q3

REPORT INFORMATION
  Report Type: 
  Country: None (occurrence: None)
  Receive Date: 20060712
  Receipt Date: 20060630
  Transmission Date: 20061208
  Serious: Yes (Death)
  Sender: FDA-Public Use
  Company Number: 14340

PATIENT
  Age: 56 Year
  Sex: Male

DRUGS (11)
  1. FLUCONAZOLE [Suspect]
     Indication: SYSTEMIC CANDIDA
  2. COTRIM [Concomitant]
  3. PREDNISOLONE [Concomitant]
  4. GANCICLOVIR [Concomitant]
  5. ZIDOVUDINE [Concomitant]
  6. LAMIVUDINE [Concomitant]
  7. LOPINAVIR/RITONAVIR [Concomitant]
  8. EFAVIRENZ [Concomitant]
  9. LINEZOLID [Concomitant]
  10. PIPERACILLIN AND TAZOBACTAM [Concomitant]
  11. CORTISONE ACETATE [Concomitant]

REACTIONS (10)
  - ADRENOCORTICAL INSUFFICIENCY ACUTE [None]
  - ELECTROLYTE IMBALANCE [None]
  - FUSARIUM INFECTION [None]
  - HYPOGLYCAEMIA [None]
  - HYPOTENSION [None]
  - MYCOBACTERIUM AVIUM COMPLEX INFECTION [None]
  - PNEUMONIA FUNGAL [None]
  - STOMACH DISCOMFORT [None]
  - VOMITING [None]
  - WHITE BLOOD CELL COUNT DECREASED [None]
